FAERS Safety Report 6820782-9 (Version None)
Quarter: 2010Q3

REPORT INFORMATION
  Report Type: 
  Country: None (occurrence: None)
  Receive Date: 20100707
  Receipt Date: 20040123
  Transmission Date: 20110219
  Serious: No
  Sender: FDA-Public Use
  Company Number: US-PFIZER INC-2007057408

PATIENT
  Age: 65 Year

DRUGS (2)
  1. ZOLOFT [Suspect]
  2. XANAX [Suspect]

REACTIONS (1)
  - SPEECH DISORDER [None]
